FAERS Safety Report 10374148 (Version 2)
Quarter: 2014Q3

REPORT INFORMATION
  Report Type: Spontaneous
  Country: US (occurrence: US)
  Receive Date: 20140811
  Receipt Date: 20140815
  Transmission Date: 20150326
  Serious: No
  Sender: FDA-Public Use
  Company Number: US-AMGEN INC.-USASP2014060105

PATIENT
  Age: 53 Year
  Sex: Female

DRUGS (1)
  1. ENBREL [Suspect]
     Active Substance: ETANERCEPT
     Indication: RHEUMATOID ARTHRITIS
     Dosage: 50 MG, QWK
     Route: 058
     Dates: start: 201401

REACTIONS (7)
  - Arthropod bite [Unknown]
  - Impaired healing [Recovered/Resolved]
  - Fall [Unknown]
  - Thermal burn [Recovered/Resolved]
  - Contusion [Unknown]
  - Visual impairment [Not Recovered/Not Resolved]
  - Injury [Recovered/Resolved]

NARRATIVE: CASE EVENT DATE: 201407
